FAERS Safety Report 5066231-5 (Version None)
Quarter: 2006Q3

REPORT INFORMATION
  Report Type: 
  Country: None (occurrence: None)
  Receive Date: 20060801
  Receipt Date: 20060725
  Transmission Date: 20061208
  Serious: Yes (Death)
  Sender: FDA-Public Use
  Company Number: PHBS2006JP11194

PATIENT
  Age: 39 Year
  Sex: Male

DRUGS (3)
  1. TOLEDOMIN [Suspect]
     Route: 048
  2. MEILAX [Suspect]
     Route: 048
  3. TEGRETOL [Suspect]
     Dosage: 14000 MG
     Route: 048

REACTIONS (2)
  - DRUG TOXICITY [None]
  - SUICIDE ATTEMPT [None]
